FAERS Safety Report 24588261 (Version 1)
Quarter: 2024Q4

REPORT INFORMATION
  Report Type: Spontaneous
  Country: NL (occurrence: NL)
  Receive Date: 20241107
  Receipt Date: 20241107
  Transmission Date: 20250114
  Serious: Yes (Hospitalization, Other)
  Sender: TEVA
  Company Number: NL-TEVA-VS-3261130

PATIENT
  Age: 35 Year
  Sex: Male

DRUGS (17)
  1. PREDNISONE [Suspect]
     Active Substance: PREDNISONE
     Indication: Immunosuppressant drug therapy
     Route: 065
     Dates: start: 202301
  2. PREDNISONE [Suspect]
     Active Substance: PREDNISONE
     Indication: Immunosuppressant drug therapy
     Route: 065
  3. DOXORUBICIN [Concomitant]
     Active Substance: DOXORUBICIN
     Indication: T-cell lymphoma
     Route: 065
     Dates: start: 202301
  4. CLOBETASOL [Concomitant]
     Active Substance: CLOBETASOL
     Indication: Skin lesion
  5. TACROLIMUS [Suspect]
     Active Substance: TACROLIMUS
     Indication: Immunosuppressant drug therapy
     Route: 065
  6. CYCLOPHOSPHAMIDE [Concomitant]
     Active Substance: CYCLOPHOSPHAMIDE
     Indication: Cutaneous T-cell lymphoma
     Route: 065
     Dates: start: 202301
  7. VINCRISTINE [Concomitant]
     Active Substance: VINCRISTINE
     Indication: Cutaneous T-cell lymphoma
     Route: 065
     Dates: start: 202301
  8. ANAKINRA [Concomitant]
     Active Substance: ANAKINRA
     Indication: Drug therapy
     Route: 065
  9. Immunoglobulin [Concomitant]
     Indication: Drug therapy
     Route: 065
  10. HYDROCORTISONE [Suspect]
     Active Substance: HYDROCORTISONE
     Indication: Skin erosion
     Route: 065
  11. FLUCONAZOLE [Concomitant]
     Active Substance: FLUCONAZOLE
     Indication: Drug therapy
     Route: 065
  12. MUPIROCIN [Concomitant]
     Active Substance: MUPIROCIN
     Indication: Skin erosion
     Route: 065
  13. FUCIDIN [Concomitant]
     Active Substance: FUSIDATE SODIUM
     Indication: Drug therapy
     Route: 065
  14. HYDROCORTISONE\OXYTETRACYCLINE [Suspect]
     Active Substance: HYDROCORTISONE\OXYTETRACYCLINE
     Indication: Skin erosion
     Route: 065
  15. VALACYCLOVIR HYDROCHLORIDE [Concomitant]
     Active Substance: VALACYCLOVIR HYDROCHLORIDE
     Indication: Drug therapy
  16. TRIAMCINOLONE [Concomitant]
     Active Substance: TRIAMCINOLONE
     Indication: Skin erosion
     Route: 065
  17. ETOPOSIDE [Suspect]
     Active Substance: ETOPOSIDE
     Indication: Cutaneous T-cell lymphoma
     Route: 065

REACTIONS (3)
  - Drug ineffective [Unknown]
  - Myelosuppression [Unknown]
  - Cutaneous T-cell lymphoma [Recovered/Resolved]
